FAERS Safety Report 21846407 (Version 2)
Quarter: 2023Q1

REPORT INFORMATION
  Report Type: Spontaneous
  Country: US (occurrence: US)
  Receive Date: 20230111
  Receipt Date: 20230306
  Transmission Date: 20230417
  Serious: No
  Sender: FDA-Public Use
  Company Number: US-BRISTOL-MYERS SQUIBB COMPANY-2023-003863

PATIENT
  Age: 77 Year
  Sex: Male

DRUGS (2)
  1. REVLIMID [Suspect]
     Active Substance: LENALIDOMIDE
     Indication: Follicular lymphoma
     Dosage: 20 MG, 1 CAPSULE, 3 WEEKS ON, 1 WEEK OFF
     Route: 048
  2. REVLIMID [Suspect]
     Active Substance: LENALIDOMIDE
     Dosage: 20 MG, 1 CAPSULE, 3 WEEKS ON, 1 WEEK OFF
     Route: 048

REACTIONS (3)
  - Abdominal discomfort [Unknown]
  - Faeces soft [Unknown]
  - Vertigo [Unknown]
